FAERS Safety Report 18370583 (Version 1)
Quarter: 2020Q4

REPORT INFORMATION
  Report Type: Report from Study
  Country: GH (occurrence: GH)
  Receive Date: 20201012
  Receipt Date: 20201012
  Transmission Date: 20210114
  Serious: Yes (Hospitalization, Other)
  Sender: FDA-Public Use
  Company Number: NVSC2020GH271860

PATIENT
  Age: 84 Year
  Sex: Female

DRUGS (1)
  1. UPERIO [Suspect]
     Active Substance: SACUBITRIL\VALSARTAN
     Indication: ISCHAEMIC CARDIOMYOPATHY
     Dosage: 50 MG, BID
     Route: 048
     Dates: start: 20201001

REACTIONS (7)
  - Product use in unapproved indication [Unknown]
  - Hyperhidrosis [Not Recovered/Not Resolved]
  - Pollakiuria [Not Recovered/Not Resolved]
  - Insomnia [Not Recovered/Not Resolved]
  - Oedema [Not Recovered/Not Resolved]
  - Back pain [Not Recovered/Not Resolved]
  - Cough [Not Recovered/Not Resolved]

NARRATIVE: CASE EVENT DATE: 20201001
